FAERS Safety Report 5657394-9 (Version None)
Quarter: 2008Q1

REPORT INFORMATION
  Report Type: 
  Country: None (occurrence: None)
  Receive Date: 20080310
  Receipt Date: 20080228
  Transmission Date: 20080703
  Serious: Yes (Hospitalization)
  Sender: FDA-Public Use
  Company Number: PHBS2008JP02726

PATIENT
  Sex: Male

DRUGS (1)
  1. STARSIS [Suspect]
     Indication: DIABETES MELLITUS
     Dosage: 180 MG/DAY
     Route: 048

REACTIONS (2)
  - BLOOD AMYLASE INCREASED [None]
  - PANCREATITIS ACUTE [None]
